FAERS Safety Report 7078569-0 (Version None)
Quarter: 2010Q4

REPORT INFORMATION
  Report Type: 
  Country: None (occurrence: None)
  Receive Date: 20101101
  Receipt Date: 20101101
  Transmission Date: 20110411
  Serious: Yes (Other)
  Sender: FDA-Public Use
  Company Number: None

PATIENT
  Age: 6 Month
  Sex: Male
  Weight: 8.6183 kg

DRUGS (1)
  1. TEETHING TABLETS 3X HPUS HYLAND'S [Suspect]
     Indication: TEETHING
     Dosage: 2 TABLETS 2-5/DAY PO
     Route: 048
     Dates: start: 20100815, end: 20101028

REACTIONS (1)
  - CONSTIPATION [None]
